FAERS Safety Report 15181185 (Version 13)
Quarter: 2019Q2

REPORT INFORMATION
  Report Type: Spontaneous
  Country: US (occurrence: US)
  Receive Date: 20180723
  Receipt Date: 20190416
  Transmission Date: 20190711
  Serious: Yes (Hospitalization, Other)
  Sender: FDA-Public Use
  Company Number: US-VERTEX PHARMACEUTICALS-2018-004944

PATIENT
  Age: 20 Year
  Sex: Male

DRUGS (4)
  1. PULMOZYME [Concomitant]
     Active Substance: DORNASE ALFA
     Dosage: 2.5 MG, BID
     Route: 055
  2. ORKAMBI [Suspect]
     Active Substance: IVACAFTOR\LUMACAFTOR
     Indication: CYSTIC FIBROSIS
     Dosage: 2 DOSAGE FORM (200/125MG EACH), BID
     Route: 048
     Dates: start: 2015, end: 20181122
  3. ZITHROMAX [Concomitant]
     Active Substance: AZITHROMYCIN DIHYDRATE
     Dosage: 500 MG EVERY MON-WED-FRIDAY
  4. BETHKIS [Concomitant]
     Active Substance: TOBRAMYCIN
     Dosage: 4 MILLILITER, BID

REACTIONS (10)
  - Aspartate aminotransferase increased [Recovered/Resolved]
  - Cystic fibrosis [Not Recovered/Not Resolved]
  - Infective pulmonary exacerbation of cystic fibrosis [Unknown]
  - Infective pulmonary exacerbation of cystic fibrosis [Recovered/Resolved]
  - Alanine aminotransferase increased [Recovering/Resolving]
  - Deep vein thrombosis [Recovered/Resolved]
  - Blood bilirubin increased [Recovered/Resolved]
  - Diabetes mellitus [Recovering/Resolving]
  - Blood alkaline phosphatase increased [Unknown]
  - Treatment noncompliance [Recovered/Resolved]

NARRATIVE: CASE EVENT DATE: 2018
